FAERS Safety Report 21252901 (Version 3)
Quarter: 2023Q4

REPORT INFORMATION
  Report Type: Report from Study
  Country: CA (occurrence: None)
  Receive Date: 20220825
  Receipt Date: 20231206
  Transmission Date: 20240110
  Serious: Yes (Hospitalization)
  Sender: FDA-Public Use
  Company Number: CA-ROCHE-3165413

PATIENT
  Age: 74 Year
  Sex: Male
  Weight: 91.6 kg

DRUGS (6)
  1. RITUXIMAB [Suspect]
     Active Substance: RITUXIMAB
     Indication: Follicular lymphoma
     Dosage: THE LAST DOSE OF RITUXIMAB PRIOR TO THE SERIOUS ADVERSE EVENT (SAE) WAS ADMINISTERED ON 21/JUN/2022.
     Route: 041
     Dates: start: 20220525, end: 20220705
  2. RITUXIMAB [Suspect]
     Active Substance: RITUXIMAB
     Route: 041
     Dates: start: 20220816
  3. TAFASITAMAB-CXIX [Suspect]
     Active Substance: TAFASITAMAB-CXIX
     Indication: Follicular lymphoma
     Dosage: THE LAST DOSE OF INCMOR00208/PLACEBO PRIOR TO THE SAE WAS ADMINISTERED ON 27/JUN/2022
     Route: 042
     Dates: start: 20220524, end: 20220705
  4. TAFASITAMAB-CXIX [Suspect]
     Active Substance: TAFASITAMAB-CXIX
     Route: 042
     Dates: start: 20220808
  5. LENALIDOMIDE [Suspect]
     Active Substance: LENALIDOMIDE
     Indication: Follicular lymphoma
     Dosage: THE LAST DOSE OF LENALIDOMIDE PRIOR TO THE SAE WAS TAKEN ON 04/JUL/2022
     Route: 048
     Dates: start: 20220524, end: 20220705
  6. LENALIDOMIDE [Suspect]
     Active Substance: LENALIDOMIDE
     Route: 048
     Dates: start: 20220808

REACTIONS (1)
  - COVID-19 [Recovered/Resolved]

NARRATIVE: CASE EVENT DATE: 20220705
